FAERS Safety Report 5957544-0 (Version None)
Quarter: 2008Q4

REPORT INFORMATION
  Report Type: 
  Country: None (occurrence: None)
  Receive Date: 20081119
  Receipt Date: 20081117
  Transmission Date: 20090506
  Serious: Yes (Other)
  Sender: FDA-Public Use
  Company Number: US-SP-2008-01143

PATIENT
  Age: 23 Year
  Sex: Female

DRUGS (5)
  1. ADACEL [Suspect]
     Indication: IMMUNISATION
     Route: 030
     Dates: start: 20080411
  2. TUBERSOL [Suspect]
     Indication: TUBERCULIN TEST
     Route: 023
     Dates: start: 20080411
  3. M-M-R II [Suspect]
     Indication: IMMUNISATION
     Route: 058
     Dates: start: 20080411
  4. HEPATITIS B VACCINE [Suspect]
     Indication: IMMUNISATION
     Route: 030
     Dates: start: 20080411
  5. M-M-R II [Concomitant]
     Route: 058
     Dates: start: 20080509

REACTIONS (1)
  - ABORTION SPONTANEOUS [None]
